FAERS Safety Report 13028823 (Version 2)
Quarter: 2016Q4

REPORT INFORMATION
  Report Type: Spontaneous
  Country: JP (occurrence: JP)
  Receive Date: 20161214
  Receipt Date: 20161230
  Transmission Date: 20170207
  Serious: Yes (Life-Threatening, Other)
  Sender: FDA-Public Use
  Company Number: JP-ABBVIE-16P-087-1810255-00

PATIENT
  Age: 65 Year
  Sex: Male
  Weight: 96 kg

DRUGS (12)
  1. CASODEX [Suspect]
     Active Substance: BICALUTAMIDE
     Dosage: 80 MG, QD
     Route: 048
     Dates: start: 200810, end: 200812
  2. LEUPLIN SR [Suspect]
     Active Substance: LEUPROLIDE ACETATE
     Indication: PROSTATE CANCER
     Dosage: 11.25 MG, Q3MONTHS
     Route: 058
     Dates: start: 20070324, end: 20160607
  3. METFORMIN HYDROCHLORIDE. [Concomitant]
     Active Substance: METFORMIN HYDROCHLORIDE
     Indication: PRODUCT USED FOR UNKNOWN INDICATION
     Dosage: 500 MG, UNK
     Route: 048
     Dates: end: 20160901
  4. RISEDRONATE SODIUM. [Concomitant]
     Active Substance: RISEDRONATE SODIUM
     Indication: PRODUCT USED FOR UNKNOWN INDICATION
     Dosage: 17.5 MG, 1/WEEK
     Route: 048
  5. PIOGLITAZONE HYDROCHLORIDE. [Concomitant]
     Active Substance: PIOGLITAZONE HYDROCHLORIDE
     Indication: PRODUCT USED FOR UNKNOWN INDICATION
     Dosage: 15 MG, UNK
     Route: 048
     Dates: end: 20160901
  6. CASODEX [Suspect]
     Active Substance: BICALUTAMIDE
     Dosage: 80 MG, QD
     Route: 048
     Dates: start: 201102, end: 201201
  7. LOSARTAN POTASSIUM. [Concomitant]
     Active Substance: LOSARTAN POTASSIUM
     Indication: PRODUCT USED FOR UNKNOWN INDICATION
     Dosage: 50 MG, QD
     Route: 048
     Dates: end: 20160901
  8. CASODEX [Suspect]
     Active Substance: BICALUTAMIDE
     Indication: PROSTATE CANCER
     Dosage: 80 MG, QD
     Route: 048
     Dates: start: 200703, end: 200804
  9. CASODEX [Suspect]
     Active Substance: BICALUTAMIDE
     Dosage: 80 MG, QD
     Route: 048
     Dates: start: 201207, end: 201310
  10. LIRAGLUTIDE [Concomitant]
     Active Substance: LIRAGLUTIDE
     Indication: PRODUCT USED FOR UNKNOWN INDICATION
     Dosage: 0.9 MG, UNK
     Route: 058
  11. INSULIN DEGLUDEC [Concomitant]
     Active Substance: INSULIN DEGLUDEC
     Indication: PRODUCT USED FOR UNKNOWN INDICATION
     Dosage: 24 IU, UNK
     Route: 058
  12. CASODEX [Suspect]
     Active Substance: BICALUTAMIDE
     Dosage: 80 MG, QD
     Route: 048
     Dates: start: 20160315, end: 20160901

REACTIONS (4)
  - Bone lesion [Unknown]
  - Electrocardiogram QT prolonged [Recovering/Resolving]
  - Cardiac hypertrophy [Unknown]
  - Ventricular fibrillation [Recovering/Resolving]

NARRATIVE: CASE EVENT DATE: 201003
